FAERS Safety Report 11727400 (Version 1)
Quarter: 2015Q4

REPORT INFORMATION
  Report Type: Report from Study
  Country: GB (occurrence: GB)
  Receive Date: 20151112
  Receipt Date: 20151112
  Transmission Date: 20160304
  Serious: Yes (Death)
  Sender: FDA-Public Use
  Company Number: GB-MYLANLABS-2015M1038979

PATIENT

DRUGS (15)
  1. CODEINE [Concomitant]
     Active Substance: CODEINE
     Route: 065
  2. MORPHINE [Concomitant]
     Active Substance: MORPHINE
     Route: 065
  3. NICOTINE. [Concomitant]
     Active Substance: NICOTINE
     Route: 065
  4. LIDOCAINE. [Concomitant]
     Active Substance: LIDOCAINE
     Route: 065
  5. NOSCAPINE [Concomitant]
     Active Substance: NOSCAPINE
     Route: 065
  6. NORDAZEPAM [Concomitant]
     Active Substance: NORDAZEPAM
     Route: 065
  7. CAFFEINE. [Concomitant]
     Active Substance: CAFFEINE
     Route: 065
  8. BUPRENORPHINE. [Suspect]
     Active Substance: BUPRENORPHINE
     Indication: PRODUCT USED FOR UNKNOWN INDICATION
     Route: 065
  9. PAPAVERINE [Concomitant]
     Active Substance: PAPAVERINE
     Route: 065
  10. FLUOXETINE [Concomitant]
     Active Substance: FLUOXETINE HYDROCHLORIDE
     Route: 065
  11. PARACETAMOL [Concomitant]
     Active Substance: ACETAMINOPHEN
     Route: 065
  12. LEVAMISOLE [Concomitant]
     Active Substance: LEVAMISOLE
     Route: 065
  13. MIRTAZAPINE. [Concomitant]
     Active Substance: MIRTAZAPINE
     Route: 065
  14. METHADONE [Suspect]
     Active Substance: METHADONE HYDROCHLORIDE
     Indication: PRODUCT USED FOR UNKNOWN INDICATION
     Route: 065
  15. DIAZEPAM. [Concomitant]
     Active Substance: DIAZEPAM
     Route: 065

REACTIONS (1)
  - Adverse drug reaction [Fatal]
